FAERS Safety Report 15565446 (Version 1)
Quarter: 2020Q3

REPORT INFORMATION
  Report Type: Spontaneous
  Country: ZA (occurrence: ZA)
  Receive Date: 20181030
  Receipt Date: 20181030
  Transmission Date: 20201104
  Serious: Yes (Other)
  Sender: FDA-Public Use
  Company Number: ZA-HORMOSAN PHARMA GMBH-2018-07526

PATIENT
  Age: 66 Year
  Sex: Female

DRUGS (19)
  1. LASIX [Suspect]
     Active Substance: FUROSEMIDE
     Indication: DIURETIC THERAPY
     Dosage: 20 MG, UNK
     Route: 048
  2. PERINDOPRIL RAN [Suspect]
     Active Substance: PERINDOPRIL ERBUMINE
     Indication: HYPERTENSION
     Dosage: 4 MG, UNK
     Route: 048
  3. DOPAQUEL [Suspect]
     Active Substance: QUETIAPINE
     Indication: BIPOLAR DISORDER
     Dosage: 300 MG, UNK
     Route: 048
  4. TREPILINE                          /00002201/ [Suspect]
     Active Substance: AMITRIPTYLINE
     Indication: STRESS
     Dosage: 25 MG, UNK
     Route: 048
  5. RANFLOCS [Suspect]
     Active Substance: FLUOXETINE HYDROCHLORIDE
     Indication: DEPRESSION
     Dosage: 20 MG, UNK
     Route: 048
  6. OXYNORM [Suspect]
     Active Substance: OXYCODONE HYDROCHLORIDE
     Indication: PRODUCT USED FOR UNKNOWN INDICATION
     Dosage: 10 MG, UNK
     Route: 048
  7. PLENISH?K [Suspect]
     Active Substance: POTASSIUM CHLORIDE
     Indication: MINERAL SUPPLEMENTATION
     Dosage: 600 MG, UNK
     Route: 048
  8. CARBILEV [Suspect]
     Active Substance: CARBIDOPA\LEVODOPA
     Indication: PARKINSON^S DISEASE
     Dosage: 25/100 MG, UNK
     Route: 048
  9. ASTHAVENT                          /00139501/ [Suspect]
     Active Substance: ALBUTEROL
     Indication: ASTHMA
     Dosage: 100 MCG, UNK
     Route: 065
  10. TARGINACT [Suspect]
     Active Substance: NALOXONE HYDROCHLORIDE\OXYCODONE HYDROCHLORIDE
     Indication: PRODUCT USED FOR UNKNOWN INDICATION
     Dosage: 40/20 MG, UNK
     Route: 048
  11. ZOPIVANE [Suspect]
     Active Substance: ZOPICLONE
     Indication: INSOMNIA
     Dosage: 7.5 MG, UNK
     Route: 048
  12. SYMBICORD [Suspect]
     Active Substance: BUDESONIDE\FORMOTEROL
     Indication: ASTHMA
     Dosage: 160 MCG, UNK
     Route: 065
  13. COVERAM [Suspect]
     Active Substance: AMLODIPINE\PERINDOPRIL
     Indication: HYPERTENSION
     Dosage: 5/5 MG, UNK
     Route: 048
  14. DYNA LAMOTRIGINE TABLETS [Suspect]
     Active Substance: LAMOTRIGINE
     Indication: BIPOLAR DISORDER
     Dosage: 200 MG AND 50 MG
     Route: 048
  15. ETORICOXIB. [Suspect]
     Active Substance: ETORICOXIB
     Indication: PRODUCT USED FOR UNKNOWN INDICATION
     Dosage: 90 MG, UNK
     Route: 048
  16. BE?TABS PREDNISONE [Suspect]
     Active Substance: PREDNISONE
     Indication: PRODUCT USED FOR UNKNOWN INDICATION
     Dosage: 5 MG, UNK
     Route: 048
  17. EPILIZINE [Suspect]
     Active Substance: VALPROATE SODIUM
     Indication: BIPOLAR DISORDER
     Dosage: 500 MG, UNK
     Route: 048
  18. EUTHYROX [Suspect]
     Active Substance: LEVOTHYROXINE SODIUM
     Indication: THYROID DISORDER
     Dosage: 50 MCG, UNK
     Route: 048
  19. COXLEON [Suspect]
     Active Substance: CELECOXIB
     Indication: PAIN
     Dosage: 100 MG, UNK
     Route: 048

REACTIONS (3)
  - Blindness [Unknown]
  - Uterine cancer [Unknown]
  - Metastases to bone [Unknown]

NARRATIVE: CASE EVENT DATE: 2016
